FAERS Safety Report 13793885 (Version 2)
Quarter: 2017Q3

REPORT INFORMATION
  Report Type: Report from Study
  Country: US (occurrence: US)
  Receive Date: 20170726
  Receipt Date: 20170808
  Transmission Date: 20171127
  Serious: Yes (Hospitalization)
  Sender: FDA-Public Use
  Company Number: US-AMGEN-USASL2017110696

PATIENT
  Sex: Female

DRUGS (1)
  1. REPATHA [Suspect]
     Active Substance: EVOLOCUMAB
     Indication: HYPERCHOLESTEROLAEMIA
     Dosage: 140 MG, QMO
     Route: 065
     Dates: start: 20151211

REACTIONS (7)
  - Blood pressure abnormal [Unknown]
  - Vomiting [Unknown]
  - Blood potassium abnormal [Unknown]
  - Blood pressure increased [Unknown]
  - Diarrhoea [Unknown]
  - Mass [Recovered/Resolved]
  - Intentional product misuse [Unknown]
